FAERS Safety Report 23384553 (Version 1)
Quarter: 2024Q1

REPORT INFORMATION
  Report Type: Spontaneous
  Country: CH (occurrence: CH)
  Receive Date: 20240109
  Receipt Date: 20240109
  Transmission Date: 20240410
  Serious: Yes (Hospitalization, Other)
  Sender: FDA-Public Use
  Company Number: None

PATIENT
  Age: 44 Year
  Sex: Female
  Weight: 63 kg

DRUGS (3)
  1. KEYTRUDA [Suspect]
     Active Substance: PEMBROLIZUMAB
     Indication: Metastatic malignant melanoma
     Dosage: 200 MILLIGRAM
     Route: 042
     Dates: start: 20230817, end: 20230817
  2. YERVOY [Suspect]
     Active Substance: IPILIMUMAB
     Indication: Metastatic malignant melanoma
     Dosage: 190 MG/DOSE
     Route: 042
     Dates: start: 20230921, end: 20231012
  3. OPDIVO [Suspect]
     Active Substance: NIVOLUMAB
     Indication: Metastatic malignant melanoma
     Dosage: 65 MG/DOSE
     Route: 042
     Dates: start: 20230921, end: 20231012

REACTIONS (2)
  - Cholecystitis acute [Unknown]
  - Hepatitis [Unknown]

NARRATIVE: CASE EVENT DATE: 20231031
